FAERS Safety Report 4483423-4 (Version None)
Quarter: 2004Q4

REPORT INFORMATION
  Report Type: 
  Country: None (occurrence: None)
  Receive Date: 20041020
  Receipt Date: 20041005
  Transmission Date: 20050328
  Serious: Yes (Other)
  Sender: FDA-Public Use
  Company Number: USA041080274

PATIENT
  Age: 30 Year
  Sex: Male

DRUGS (1)
  1. ILETIN-PORK NPH INSULIN (INSULIN, ANIMAL) [Suspect]

REACTIONS (1)
  - BLINDNESS [None]
